FAERS Safety Report 18690136 (Version 1)
Quarter: 2020Q4

REPORT INFORMATION
  Report Type: Spontaneous
  Country: US (occurrence: US)
  Receive Date: 20201231
  Receipt Date: 20201231
  Transmission Date: 20210114
  Serious: Yes (Hospitalization, Other)
  Sender: FDA-Public Use
  Company Number: US-ASTRAZENECA-2020SF73782

PATIENT
  Age: 5 Week
  Sex: Male
  Weight: 3.9 kg

DRUGS (4)
  1. NEXIUM [Suspect]
     Active Substance: ESOMEPRAZOLE MAGNESIUM
     Indication: GASTROOESOPHAGEAL REFLUX DISEASE
     Route: 048
     Dates: start: 20201202
  2. NUTRAMIGEN [Concomitant]
     Active Substance: AMINO ACIDS
  3. SIMETHICONE (DIMETHICONE) [Concomitant]
     Active Substance: DIMETHICONE
  4. SIMILAC [Concomitant]
     Active Substance: DEXTROSE\WATER

REACTIONS (10)
  - Feeding disorder [Unknown]
  - Abdominal pain [Unknown]
  - Condition aggravated [Not Recovered/Not Resolved]
  - Poor quality sleep [Unknown]
  - Gastrooesophageal reflux disease [Not Recovered/Not Resolved]
  - Drug ineffective [Unknown]
  - Crying [Not Recovered/Not Resolved]
  - Headache [Unknown]
  - Constipation [Unknown]
  - Infantile vomiting [Unknown]

NARRATIVE: CASE EVENT DATE: 20201223
